FAERS Safety Report 25700048 (Version 1)
Quarter: 2025Q3

REPORT INFORMATION
  Report Type: Spontaneous
  Country: US (occurrence: US)
  Receive Date: 20250819
  Receipt Date: 20250819
  Transmission Date: 20251021
  Serious: Yes (Other)
  Sender: AMGEN
  Company Number: US-AMGEN-USASP2025160335

PATIENT

DRUGS (6)
  1. BEVACIZUMAB [Suspect]
     Active Substance: BEVACIZUMAB
     Indication: Glioma
     Route: 065
  2. VORASIDENIB [Concomitant]
     Active Substance: VORASIDENIB
     Indication: Glioma
     Dosage: 40 MILLIGRAM, QD
     Route: 065
  3. VORASIDENIB [Concomitant]
     Active Substance: VORASIDENIB
     Indication: Astrocytoma
  4. VORASIDENIB [Concomitant]
     Active Substance: VORASIDENIB
     Indication: Oligodendroglioma
  5. VORASIDENIB [Concomitant]
     Active Substance: VORASIDENIB
     Indication: Oligoastrocytoma
  6. TEMOZOLOMIDE [Concomitant]
     Active Substance: TEMOZOLOMIDE
     Indication: Glioma

REACTIONS (2)
  - Glioma [Unknown]
  - Off label use [Unknown]
